FAERS Safety Report 7157210-2 (Version None)
Quarter: 2010Q4

REPORT INFORMATION
  Report Type: 
  Country: None (occurrence: None)
  Receive Date: 20101214
  Receipt Date: 20091209
  Transmission Date: 20110411
  Serious: No
  Sender: FDA-Public Use
  Company Number: US-ASTRAZENECA-2009SE30963

PATIENT
  Age: 67 Year
  Sex: Female

DRUGS (5)
  1. CRESTOR [Suspect]
     Route: 048
     Dates: start: 20040101, end: 20090801
  2. ACTIVILLA [Concomitant]
  3. LISINOPRIL [Concomitant]
  4. ASPIRIN [Concomitant]
  5. METHAMAZOLE [Concomitant]

REACTIONS (4)
  - FATIGUE [None]
  - MUSCLE DISORDER [None]
  - PAIN IN EXTREMITY [None]
  - THYROID DISORDER [None]
